FAERS Safety Report 17959729 (Version 1)
Quarter: 2020Q2

REPORT INFORMATION
  Report Type: Report from Study
  Country: JP (occurrence: JP)
  Receive Date: 20200629
  Receipt Date: 20200629
  Transmission Date: 20200714
  Serious: Yes (Hospitalization)
  Sender: FDA-Public Use
  Company Number: JP-JNJFOC-20200627051

PATIENT
  Age: 59 Year
  Sex: Female
  Weight: 46.3 kg

DRUGS (26)
  1. TIZANIDINE. [Concomitant]
     Active Substance: TIZANIDINE
     Indication: NECK PAIN
     Route: 048
     Dates: start: 20200406, end: 20200507
  2. USTEKINUMAB [Suspect]
     Active Substance: USTEKINUMAB
     Dosage: STUDY DRUG ADMINISTRATION FOR USTEKINUMAB OR PLACEBO SUBCUTANEOUS
     Route: 058
     Dates: start: 20190603, end: 20200302
  3. PREDONINE [Concomitant]
     Active Substance: PREDNISOLONE
     Indication: SYSTEMIC LUPUS ERYTHEMATOSUS
     Route: 048
     Dates: start: 20181204, end: 20191021
  4. VOGLIBOSE [Concomitant]
     Active Substance: VOGLIBOSE
     Indication: DIABETES MELLITUS
     Route: 048
     Dates: start: 20140913
  5. TAKECAB [Concomitant]
     Active Substance: VONOPRAZAN FUMARATE
     Indication: GASTRODUODENAL ULCER
     Route: 048
     Dates: start: 20161101
  6. URSODEOXYCHOLIC ACID [Concomitant]
     Active Substance: URSODIOL
     Indication: CHOLELITHIASIS
     Route: 048
     Dates: start: 20190827
  7. PYLON [Concomitant]
     Indication: SYSTEMIC LUPUS ERYTHEMATOSUS
     Dosage: AS NECESSARY
     Route: 048
     Dates: start: 20200512, end: 20200601
  8. SUCRALFATE. [Concomitant]
     Active Substance: SUCRALFATE
     Indication: GASTRODUODENAL ULCER
     Route: 048
     Dates: start: 20140913
  9. RISEDRONATE SODIUM. [Concomitant]
     Active Substance: RISEDRONATE SODIUM
     Indication: OSTEOPOROSIS PROPHYLAXIS
     Route: 048
     Dates: start: 20140208
  10. PREDONINE [Concomitant]
     Active Substance: PREDNISOLONE
     Route: 048
     Dates: start: 20191217
  11. VILDAGLIPTIN [Concomitant]
     Active Substance: VILDAGLIPTIN
     Indication: DIABETES MELLITUS
     Route: 048
     Dates: start: 20110802
  12. LYRICA [Concomitant]
     Active Substance: PREGABALIN
     Indication: SPONDYLOLISTHESIS
     Route: 048
     Dates: start: 20160905
  13. USTEKINUMAB [Suspect]
     Active Substance: USTEKINUMAB
     Dosage: STUDY DRUG ADMINISTRATION FOR USTEKINUMAB SUBCUTANEOUS
     Route: 058
     Dates: start: 20200508
  14. PREDONINE [Concomitant]
     Active Substance: PREDNISOLONE
     Dosage: 22/JUN/2020
     Route: 048
     Dates: start: 202006
  15. SPIRONOLACTONE. [Concomitant]
     Active Substance: SPIRONOLACTONE
     Indication: HYPERTENSION
     Route: 048
     Dates: start: 20140107
  16. KETOPROFEN. [Concomitant]
     Active Substance: KETOPROFEN
     Indication: SPONDYLOLISTHESIS
     Route: 048
     Dates: start: 20180507
  17. PL [Concomitant]
     Active Substance: ACETAMINOPHEN\CAFFEINE\PROMETHAZINE\SALICYLAMIDE
     Indication: NASOPHARYNGITIS
     Route: 048
     Dates: start: 20200117, end: 20200119
  18. CALFINA [Concomitant]
     Active Substance: ALFACALCIDOL
     Indication: OSTEOPOROSIS PROPHYLAXIS
     Route: 048
     Dates: start: 20120502
  19. LIXIANA [Concomitant]
     Active Substance: EDOXABAN TOSYLATE
     Indication: VENOUS THROMBOSIS
     Route: 048
     Dates: start: 20190415
  20. USTEKINUMAB [Suspect]
     Active Substance: USTEKINUMAB
     Indication: SYSTEMIC LUPUS ERYTHEMATOSUS
     Route: 042
     Dates: start: 20190408, end: 20190408
  21. PREDONINE [Concomitant]
     Active Substance: PREDNISOLONE
     Route: 048
     Dates: start: 20191022, end: 20191216
  22. AMLODIPINE [Concomitant]
     Active Substance: AMLODIPINE BESYLATE
     Indication: HYPERTENSION
     Route: 048
     Dates: start: 20120528
  23. ATORVASTATIN [Concomitant]
     Active Substance: ATORVASTATIN
     Indication: HYPERLIPIDAEMIA
     Route: 048
     Dates: start: 20131210
  24. CALCIUM LACTATE [Concomitant]
     Active Substance: CALCIUM LACTATE
     Indication: OSTEOPOROSIS PROPHYLAXIS
     Route: 048
     Dates: start: 20160510
  25. INFLUENZA HA VACCINE [Concomitant]
     Active Substance: INFLUENZA VIRUS VACCINE
     Indication: ANTIVIRAL PROPHYLAXIS
     Route: 058
     Dates: start: 20191021, end: 20191021
  26. PL [Concomitant]
     Active Substance: ACETAMINOPHEN\CAFFEINE\PROMETHAZINE\SALICYLAMIDE
     Route: 048
     Dates: start: 20191128, end: 20191129

REACTIONS (1)
  - Systemic lupus erythematosus [Not Recovered/Not Resolved]

NARRATIVE: CASE EVENT DATE: 20200601
